FAERS Safety Report 16542173 (Version 1)
Quarter: 2019Q3

REPORT INFORMATION
  Report Type: Spontaneous
  Country: US (occurrence: US)
  Receive Date: 20190708
  Receipt Date: 20190708
  Transmission Date: 20191004
  Serious: No
  Sender: FDA-Public Use
  Company Number: US-TEIKOKU PHARMA USA-TPU2019-00497

PATIENT
  Sex: Female
  Weight: 83.99 kg

DRUGS (5)
  1. TOPORAL [Concomitant]
     Indication: VENTRICULAR EXTRASYSTOLES
  2. CYMBALTA [Concomitant]
     Active Substance: DULOXETINE HYDROCHLORIDE
     Indication: ANXIETY
     Dates: start: 2009
  3. ATORVASTATIN [Concomitant]
     Active Substance: ATORVASTATIN
     Indication: BLOOD CHOLESTEROL
     Dates: start: 2017
  4. OTC ALLERGY PILL [Concomitant]
     Indication: HYPERSENSITIVITY
  5. LIDOCAINE PATCH [Suspect]
     Active Substance: LIDOCAINE
     Indication: PROCEDURAL PAIN
     Route: 061
     Dates: start: 20190614

REACTIONS (1)
  - Drug ineffective for unapproved indication [Unknown]
